FAERS Safety Report 5862821-8 (Version None)
Quarter: 2008Q3

REPORT INFORMATION
  Report Type: 
  Country: None (occurrence: None)
  Receive Date: 20080828
  Receipt Date: 20080821
  Transmission Date: 20090109
  Serious: Yes (Death)
  Sender: FDA-Public Use
  Company Number: A0684176A

PATIENT
  Age: 58 Year
  Sex: Male
  Weight: 81.8 kg

DRUGS (5)
  1. AVANDIA [Suspect]
     Dosage: 8MG PER DAY
     Dates: start: 20010731, end: 20060215
  2. GLUCOPHAGE [Concomitant]
     Dates: start: 20010731, end: 20060215
  3. METFORMIN HCL [Concomitant]
     Dates: start: 20050101, end: 20060101
  4. DIABETA [Concomitant]
  5. GLUCOTROL [Concomitant]
     Dates: start: 19970101, end: 20010101

REACTIONS (8)
  - ANXIETY [None]
  - CHEST PAIN [None]
  - HEART INJURY [None]
  - INJURY [None]
  - JOINT SWELLING [None]
  - MYOCARDIAL INFARCTION [None]
  - PAIN [None]
  - RETINAL HAEMORRHAGE [None]
